FAERS Safety Report 5586435-2 (Version None)
Quarter: 2008Q1

REPORT INFORMATION
  Report Type: 
  Country: None (occurrence: None)
  Receive Date: 20080108
  Receipt Date: 20080108
  Transmission Date: 20080703
  Serious: No
  Sender: FDA-Public Use
  Company Number: None

PATIENT
  Sex: Male
  Weight: 81.6475 kg

DRUGS (2)
  1. PEGASYS [Suspect]
     Indication: HEPATITIS C VIRUS
     Dosage: 40K DA PEG + 20 DA PER WEEK SL
     Route: 060
     Dates: start: 20030103, end: 20031128
  2. PEGASYS [Suspect]
     Indication: HEPATITIS C VIRUS
     Dosage: 40K DA PEG + 20 DA PER WEEK SL
     Route: 060
     Dates: start: 20030105, end: 20031128

REACTIONS (7)
  - ANOREXIA [None]
  - BIPOLAR I DISORDER [None]
  - INSOMNIA [None]
  - LETHARGY [None]
  - MENTAL DISORDER [None]
  - PHARMACEUTICAL PRODUCT COMPLAINT [None]
  - UNEVALUABLE EVENT [None]
